FAERS Safety Report 7822119 (Version 3)
Quarter: 2014Q1

REPORT INFORMATION
  Report Type: Spontaneous
  Country: US (occurrence: US)
  Receive Date: 20110222
  Receipt Date: 20140207
  Transmission Date: 20141002
  Serious: Yes (Hospitalization)
  Sender: FDA-Public Use
  Company Number: US-US-EMD SERONO, INC.-230105M10USA

PATIENT
  Age: 35 Year
  Sex: Female
  Weight: 75 kg

DRUGS (5)
  1. REBIF [Suspect]
     Indication: MULTIPLE SCLEROSIS
     Route: 058
     Dates: start: 20090902
  2. TYLENOL PM [Concomitant]
     Indication: PREMEDICATION
  3. LEXAPRO [Concomitant]
     Indication: PRODUCT USED FOR UNKNOWN INDICATION
  4. PROVIGIL [Concomitant]
     Indication: PRODUCT USED FOR UNKNOWN INDICATION
  5. CYMBALTA [Concomitant]
     Indication: ANXIETY

REACTIONS (5)
  - Coronary artery disease [Recovering/Resolving]
  - Coronary artery occlusion [Recovering/Resolving]
  - Hypertension [Unknown]
  - Contusion [Unknown]
  - Influenza like illness [Unknown]
